FAERS Safety Report 7091576-7 (Version None)
Quarter: 2010Q4

REPORT INFORMATION
  Report Type: 
  Country: None (occurrence: None)
  Receive Date: 20101101
  Receipt Date: 20101025
  Transmission Date: 20110411
  Serious: Yes (Death)
  Sender: FDA-Public Use
  Company Number: 2010US004402

PATIENT
  Sex: Male

DRUGS (1)
  1. PROGRAF [Suspect]
     Indication: RENAL TRANSPLANT
     Dosage: 1 MG, BID, ORAL
     Route: 048

REACTIONS (1)
  - DEATH [None]
